FAERS Safety Report 7167469-3 (Version None)
Quarter: 2010Q4

REPORT INFORMATION
  Report Type: 
  Country: None (occurrence: None)
  Receive Date: 20101216
  Receipt Date: 20100110
  Transmission Date: 20110411
  Serious: No
  Sender: FDA-Public Use
  Company Number: A0839329A

PATIENT
  Sex: Female

DRUGS (1)
  1. NICOTINE POLACRILEX [Suspect]

REACTIONS (8)
  - CHEST DISCOMFORT [None]
  - DYSPEPSIA [None]
  - ERUCTATION [None]
  - GLOSSODYNIA [None]
  - HICCUPS [None]
  - MALAISE [None]
  - ORAL DISCOMFORT [None]
  - THROAT IRRITATION [None]
